FAERS Safety Report 8071175-0 (Version None)
Quarter: 2012Q1

REPORT INFORMATION
  Report Type: 
  Country: None (occurrence: None)
  Receive Date: 20120125
  Receipt Date: 20120113
  Transmission Date: 20120608
  Serious: Yes (Other)
  Sender: FDA-Public Use
  Company Number: PHHY2011JP55793

PATIENT
  Age: 76 Year
  Sex: Male

DRUGS (4)
  1. SUNITINIB MALATE [Suspect]
  2. IMATINIB MESYLATE [Suspect]
     Dosage: 100 MG, UNK
     Route: 048
     Dates: start: 20070101
  3. IMATINIB MESYLATE [Suspect]
     Dosage: 400 MG, UNK
     Route: 048
  4. IMATINIB MESYLATE [Suspect]
     Indication: GASTROINTESTINAL STROMAL TUMOUR
     Dosage: 400 MG, UNK
     Route: 048
     Dates: start: 20040601

REACTIONS (5)
  - NAUSEA [None]
  - INTERSTITIAL LUNG DISEASE [None]
  - NEOPLASM RECURRENCE [None]
  - GASTROINTESTINAL DISORDER [None]
  - CHEST PAIN [None]
